FAERS Safety Report 26134371 (Version 1)
Quarter: 2025Q4

REPORT INFORMATION
  Report Type: Spontaneous
  Country: US (occurrence: US)
  Receive Date: 20251209
  Receipt Date: 20251209
  Transmission Date: 20260118
  Serious: No
  Sender: AUROBINDO
  Company Number: US-AUROBINDO-AUR-APL-2025-027937

PATIENT
  Age: 82 Year
  Sex: Female
  Weight: 81.64 kg

DRUGS (1)
  1. GUAIFENESIN [Suspect]
     Active Substance: GUAIFENESIN
     Indication: Productive cough
     Dosage: 1 DOSAGE FORM, ONCE A DAY
     Dates: start: 20250521

REACTIONS (3)
  - Condition aggravated [Unknown]
  - Product use complaint [Unknown]
  - Wrong technique in product usage process [Unknown]

NARRATIVE: CASE EVENT DATE: 20250521
